FAERS Safety Report 10172645 (Version 1)
Quarter: 2014Q2

REPORT INFORMATION
  Report Type: Spontaneous
  Country: US (occurrence: US)
  Receive Date: 20140515
  Receipt Date: 20140515
  Transmission Date: 20141212
  Serious: Yes (Congenital Anomaly, Other)
  Sender: FDA-Public Use
  Company Number: US-ABBVIE-14P-163-1235351-00

PATIENT
  Sex: Female

DRUGS (1)
  1. DEPAKOTE [Suspect]
     Indication: MATERNAL EXPOSURE TIMING UNSPECIFIED
     Route: 064

REACTIONS (24)
  - Nervous system disorder [Unknown]
  - Multiple congenital abnormalities [Unknown]
  - Foetal exposure during pregnancy [Unknown]
  - Cognitive disorder [Unknown]
  - Cardiac murmur [Unknown]
  - Aortic stenosis [Unknown]
  - Amblyopia [Unknown]
  - Craniofacial deformity [Unknown]
  - Failure to thrive [Unknown]
  - Tooth disorder [Unknown]
  - Developmental delay [Unknown]
  - Speech disorder developmental [Unknown]
  - Motor dysfunction [Unknown]
  - Autism [Unknown]
  - Sensory disturbance [Unknown]
  - Injury [Unknown]
  - Injury [Unknown]
  - Emotional distress [Unknown]
  - Pain [Unknown]
  - Anhedonia [Unknown]
  - Astigmatism [Unknown]
  - Abnormal behaviour [Unknown]
  - Economic problem [Unknown]
  - Pulmonary valve stenosis [Unknown]
